FAERS Safety Report 9637831 (Version 2)
Quarter: 2013Q4

REPORT INFORMATION
  Report Type: Report from Study
  Country: CA (occurrence: CA)
  Receive Date: 20131022
  Receipt Date: 20131022
  Transmission Date: 20140711
  Serious: Yes (Hospitalization)
  Sender: FDA-Public Use
  Company Number: CA-ABBVIE-13P-028-1058572-00

PATIENT
  Sex: Female

DRUGS (2)
  1. HUMIRA [Suspect]
     Indication: CROHN^S DISEASE
     Route: 058
     Dates: start: 20121220, end: 201302
  2. HUMIRA [Suspect]
     Indication: INTESTINAL FISTULA
     Dates: start: 201306

REACTIONS (1)
  - Fistula [Recovered/Resolved]
